FAERS Safety Report 8148615-1 (Version None)
Quarter: 2012Q1

REPORT INFORMATION
  Report Type: 
  Country: None (occurrence: None)
  Receive Date: 20120218
  Receipt Date: 20110609
  Transmission Date: 20120608
  Serious: No
  Sender: FDA-Public Use
  Company Number: US-ALLERGAN-1108482US

PATIENT
  Age: 90 Year
  Sex: Male
  Weight: 78.005 kg

DRUGS (1)
  1. BOTULINUM TOXIN TYPE A [Suspect]
     Indication: TORTICOLLIS
     Dosage: 100 UNITS, SINGLE
     Route: 030
     Dates: start: 20110422, end: 20110422

REACTIONS (2)
  - NECK PAIN [None]
  - DRUG INEFFECTIVE [None]
